FAERS Safety Report 13304203 (Version 4)
Quarter: 2020Q3

REPORT INFORMATION
  Report Type: Report from Study
  Country: US (occurrence: US)
  Receive Date: 20170308
  Receipt Date: 20181115
  Transmission Date: 20201105
  Serious: Yes (Other)
  Sender: FDA-Public Use
  Company Number: US-ROCHE-1903254

PATIENT
  Age: 58 Year
  Sex: Female
  Weight: 62.65 kg

DRUGS (4)
  1. WELCHOL [Concomitant]
     Active Substance: COLESEVELAM HYDROCHLORIDE
     Route: 048
     Dates: start: 20160527
  2. DICYCLOMINE [Concomitant]
     Active Substance: DICYCLOMINE HYDROCHLORIDE
     Route: 048
     Dates: start: 20160527
  3. TRASTUZUMAB EMTANSINE [Suspect]
     Active Substance: ADO-TRASTUZUMAB EMTANSINE
     Dosage: SUBSEQUENT REGIMENS: 03/MAY/2016, 14/JUN/2016 TO 05/JUL/2016, 07/MAR/2017
     Route: 042
  4. TASELISIB. [Suspect]
     Active Substance: TASELISIB
     Dosage: SUBSEQUENT REGIMENS: 03/MAY/2016 TO 23/MAY/2016, 14/JUN/2016 TO 05/JUL/2016, 07/MAR/2017 TO 15/MAR/2
     Route: 048

REACTIONS (4)
  - Hypokalaemia [Recovered/Resolved]
  - Lipase increased [Recovered/Resolved]
  - Diarrhoea [Recovered/Resolved]
  - Hyperglycaemia [Recovered/Resolved]

NARRATIVE: CASE EVENT DATE: 20160412
